FAERS Safety Report 5496808-4 (Version None)
Quarter: 2007Q4

REPORT INFORMATION
  Report Type: 
  Country: None (occurrence: None)
  Receive Date: 20071025
  Receipt Date: 20070820
  Transmission Date: 20080405
  Serious: No
  Sender: FDA-Public Use
  Company Number: A0673071A

PATIENT
  Age: 70 Year
  Sex: Male

DRUGS (10)
  1. ADVAIR DISKUS 100/50 [Suspect]
     Indication: ASTHMA
     Dosage: 1PUFF TWICE PER DAY
     Route: 055
     Dates: start: 20000101
  2. BETOPTIC [Concomitant]
  3. TRUSOPT [Concomitant]
  4. NASAREL [Concomitant]
  5. SINGULAIR [Concomitant]
  6. ALLOPURINOL [Concomitant]
  7. FUROSEMIDE [Concomitant]
  8. POTASSIUM SUPPLEMENT [Concomitant]
  9. LISINOPRIL [Concomitant]
  10. AMBIEN [Concomitant]

REACTIONS (2)
  - CONTUSION [None]
  - INCREASED TENDENCY TO BRUISE [None]
